FAERS Safety Report 24029669 (Version 1)
Quarter: 2024Q2

REPORT INFORMATION
  Report Type: Spontaneous
  Country: US (occurrence: US)
  Receive Date: 20240628
  Receipt Date: 20240628
  Transmission Date: 20240717
  Serious: No
  Sender: FDA-Public Use
  Company Number: US-TEVA-VS-3212050

PATIENT
  Age: 32 Year
  Sex: Female

DRUGS (2)
  1. UZEDY [Suspect]
     Active Substance: RISPERIDONE
     Indication: Product used for unknown indication
     Dosage: Q1M DOSES OF UZEDY
     Route: 065
  2. UZEDY [Suspect]
     Active Substance: RISPERIDONE
     Dosage: 75MG Q1M
     Route: 065

REACTIONS (1)
  - Amenorrhoea [Not Recovered/Not Resolved]
